FAERS Safety Report 20353211 (Version 1)
Quarter: 2022Q1

REPORT INFORMATION
  Report Type: Other
  Country: None (occurrence: ID)
  Receive Date: 20220119
  Receipt Date: 20220119
  Transmission Date: 20220423
  Serious: Yes (Hospitalization, Other)
  Sender: FDA-Public Use
  Company Number: ID-ACIC Fine Chemicals Inc-2124103

PATIENT
  Age: 51 Year
  Sex: Male

DRUGS (2)
  1. PANTOPRAZOLE SODIUM [Suspect]
     Active Substance: PANTOPRAZOLE SODIUM
     Indication: Product used for unknown indication
     Route: 051
  2. PANTOPRAZOLE SODIUM [Suspect]
     Active Substance: PANTOPRAZOLE SODIUM
     Route: 051

REACTIONS (7)
  - Hyperglycaemic hyperosmolar nonketotic syndrome [Unknown]
  - Thrombocytopenia [Recovered/Resolved]
  - Pneumonia [Unknown]
  - Sepsis [Unknown]
  - Acute kidney injury [Unknown]
  - Hypotension [Unknown]
  - Tachycardia [Unknown]
